FAERS Safety Report 7551973-X (Version None)
Quarter: 2011Q2

REPORT INFORMATION
  Report Type: 
  Country: None (occurrence: None)
  Receive Date: 20110616
  Receipt Date: 20110608
  Transmission Date: 20111010
  Serious: Yes (Hospitalization)
  Sender: FDA-Public Use
  Company Number: US-NOVOPROD-329565

PATIENT
  Sex: Male
  Weight: 68.027 kg

DRUGS (2)
  1. NOVOLINA? N [Suspect]
     Indication: TYPE 1 DIABETES MELLITUS
     Dosage: 12-15 U WITH SUPPER
     Route: 058
  2. NOVOLOG [Suspect]
     Indication: TYPE 1 DIABETES MELLITUS
     Dosage: SLIDING SCALE, 4U, 6U, 8U BEFORE MEALS
     Route: 058

REACTIONS (4)
  - BLOOD GLUCOSE DECREASED [None]
  - BLOOD CREATININE INCREASED [None]
  - MENTAL DISORDER [None]
  - BLOOD GLUCOSE INCREASED [None]
